FAERS Safety Report 13916504 (Version 1)
Quarter: 2017Q3

REPORT INFORMATION
  Report Type: Spontaneous
  Country: US (occurrence: US)
  Receive Date: 20170829
  Receipt Date: 20170829
  Transmission Date: 20171127
  Serious: No
  Sender: FDA-Public Use
  Company Number: US-MYLANLABS-2017M1006237

PATIENT
  Age: 73 Year
  Sex: Female

DRUGS (1)
  1. TEMAZEPAM CAPSULES USP [Suspect]
     Active Substance: TEMAZEPAM
     Indication: INSOMNIA
     Dosage: 30 MG, QD, AT BEDTIME
     Route: 048
     Dates: start: 2009

REACTIONS (1)
  - Stupor [Recovered/Resolved]

NARRATIVE: CASE EVENT DATE: 201701
